FAERS Safety Report 24770722 (Version 2)
Quarter: 2025Q1

REPORT INFORMATION
  Report Type: Spontaneous
  Country: US (occurrence: US)
  Receive Date: 20241224
  Receipt Date: 20250101
  Transmission Date: 20250409
  Serious: No
  Sender: DAIICHI
  Company Number: US-DAIICHI SANKYO, INC.-DS-2024-116551-USAA

PATIENT
  Age: 32 Year
  Sex: Male

DRUGS (1)
  1. VANFLYTA [Suspect]
     Active Substance: QUIZARTINIB DIHYDROCHLORIDE
     Indication: Acute megakaryocytic leukaemia
     Dosage: 35.4 MG, QD (ONCE DAILY ON DAYS 8-21 OF 28 DAY CYCLE)
     Route: 048
     Dates: start: 20241128

REACTIONS (3)
  - Off label use [Not Recovered/Not Resolved]
  - Product use issue [Recovered/Resolved]
  - No adverse event [Unknown]

NARRATIVE: CASE EVENT DATE: 20241128
